FAERS Safety Report 6090371-5 (Version None)
Quarter: 2009Q1

REPORT INFORMATION
  Report Type: 
  Country: None (occurrence: None)
  Receive Date: 20090220
  Receipt Date: 20090126
  Transmission Date: 20090719
  Serious: Yes (Disabling, Other)
  Sender: FDA-Public Use
  Company Number: GB-DEXPHARM-20090170

PATIENT
  Sex: Male

DRUGS (1)
  1. SAVLON [Suspect]
     Indication: COSMETIC BODY PIERCING
     Dosage: TOPICAL
     Route: 061
     Dates: start: 20081119, end: 20081122

REACTIONS (12)
  - ACTIVITIES OF DAILY LIVING IMPAIRED [None]
  - BLISTER [None]
  - ERYTHEMA [None]
  - EYE INFLAMMATION [None]
  - EYELID BLEEDING [None]
  - EYELID FUNCTION DISORDER [None]
  - EYELID OEDEMA [None]
  - EYELID PAIN [None]
  - HAEMORRHAGE [None]
  - INFECTION [None]
  - PAIN [None]
  - SCAB [None]
